FAERS Safety Report 8343417-5 (Version None)
Quarter: 2012Q2

REPORT INFORMATION
  Report Type: 
  Country: None (occurrence: None)
  Receive Date: 20120508
  Receipt Date: 20120427
  Transmission Date: 20120825
  Serious: Yes (Other)
  Sender: FDA-Public Use
  Company Number: JP-BRISTOL-MYERS SQUIBB COMPANY-16270753

PATIENT

DRUGS (2)
  1. ZOLOFT [Concomitant]
     Dosage: TAB.
  2. ABILIFY [Suspect]
     Route: 048

REACTIONS (1)
  - HEREDITARY PANCREATITIS [None]
